FAERS Safety Report 8546229-2 (Version None)
Quarter: 2012Q3

REPORT INFORMATION
  Report Type: 
  Country: None (occurrence: None)
  Receive Date: 20120727
  Receipt Date: 20120712
  Transmission Date: 20120928
  Serious: Yes (Hospitalization)
  Sender: FDA-Public Use
  Company Number: US-ARROW-2012-12642

PATIENT
  Age: 42 Year
  Sex: Male

DRUGS (5)
  1. NIFEDIPINE [Suspect]
     Indication: PALPITATIONS
     Dosage: UNK
     Route: 048
  2. NIFEDIPINE [Suspect]
     Indication: DIZZINESS
  3. DILTIAZEM HYDROCHLORIDE [Suspect]
     Indication: DIZZINESS
  4. VERAPAMIL HCL [Suspect]
     Indication: SUPRAVENTRICULAR TACHYCARDIA
     Dosage: UNK
     Route: 048
  5. DILTIAZEM HYDROCHLORIDE [Suspect]
     Indication: PALPITATIONS
     Dosage: UNK
     Route: 048

REACTIONS (11)
  - PULMONARY OEDEMA [None]
  - ASTHENIA [None]
  - BRADYCARDIA [None]
  - DYSPNOEA [None]
  - CONFUSIONAL STATE [None]
  - HYPERHIDROSIS [None]
  - HYPOXIA [None]
  - OVERDOSE [None]
  - HYPOTENSION [None]
  - METABOLIC ACIDOSIS [None]
  - BUNDLE BRANCH BLOCK LEFT [None]
